FAERS Safety Report 20049407 (Version 1)
Quarter: 2021Q4

REPORT INFORMATION
  Report Type: Spontaneous
  Country: US (occurrence: US)
  Receive Date: 20211109
  Receipt Date: 20211109
  Transmission Date: 20220303
  Serious: No
  Sender: FDA-Public Use
  Company Number: US-PFIZER INC-202101046059

PATIENT
  Age: 60 Year
  Sex: Female
  Weight: 95.238 kg

DRUGS (1)
  1. INLYTA [Suspect]
     Active Substance: AXITINIB
     Indication: Renal cell carcinoma
     Dosage: 10 MG, TWICE DAILY
     Route: 048
     Dates: start: 20210711

REACTIONS (2)
  - Weight decreased [Unknown]
  - Nausea [Unknown]
